FAERS Safety Report 21932922 (Version 3)
Quarter: 2023Q2

REPORT INFORMATION
  Report Type: Report from Study
  Country: CA (occurrence: CA)
  Receive Date: 20230131
  Receipt Date: 20230612
  Transmission Date: 20230722
  Serious: Yes (Other)
  Sender: FDA-Public Use
  Company Number: CA-BAUSCH-BL-2023-001088

PATIENT
  Sex: Female

DRUGS (4)
  1. CONTRAVE [Suspect]
     Active Substance: BUPROPION HYDROCHLORIDE\NALTREXONE HYDROCHLORIDE
     Indication: Weight control
     Dosage: 8/90MG, (THREE YEARS AGO-BEFORE COVID)
     Route: 048
     Dates: end: 2019
  2. CONTRAVE [Suspect]
     Active Substance: BUPROPION HYDROCHLORIDE\NALTREXONE HYDROCHLORIDE
     Dosage: 8/90MG, 2TAB QAM, 2TAB QPM, SECOND ATTEMPT
     Route: 048
     Dates: start: 20230116, end: 2023
  3. CONTRAVE [Suspect]
     Active Substance: BUPROPION HYDROCHLORIDE\NALTREXONE HYDROCHLORIDE
     Dosage: 8/90MG, 2TAB QAM, 2TAB QPM
     Route: 048
     Dates: start: 20230210, end: 202304
  4. TYLENOL PM [Suspect]
     Active Substance: ACETAMINOPHEN\DIPHENHYDRAMINE
     Indication: Pain
     Dosage: UNK
     Route: 065

REACTIONS (10)
  - Accident [Unknown]
  - Limb injury [Not Recovered/Not Resolved]
  - Weight increased [Unknown]
  - Abdominal discomfort [Unknown]
  - Nausea [Not Recovered/Not Resolved]
  - Diarrhoea [Recovered/Resolved]
  - Therapy interrupted [Unknown]
  - Drug titration error [Unknown]
  - Patient dissatisfaction with treatment [Unknown]
  - Product dispensing error [Unknown]

NARRATIVE: CASE EVENT DATE: 20190101
